FAERS Safety Report 9502744 (Version 1)
Quarter: 2013Q1

REPORT INFORMATION
  Report Type: Spontaneous
  Country: US (occurrence: None)
  Receive Date: 20130225
  Receipt Date: 20130225
  Transmission Date: 20140127
  Serious: No
  Sender: FDA-Public Use
  Company Number: 362925

PATIENT
  Age: 55 Year
  Sex: Female

DRUGS (1)
  1. VICTOZA [Suspect]
     Indication: WEIGHT DECREASED
     Route: 058
     Dates: start: 20121026

REACTIONS (4)
  - Paraesthesia oral [None]
  - Feeling hot [None]
  - Vision blurred [None]
  - Feeling abnormal [None]
